FAERS Safety Report 7268892-9 (Version None)
Quarter: 2011Q1

REPORT INFORMATION
  Report Type: 
  Country: None (occurrence: None)
  Receive Date: 20110201
  Receipt Date: 20110125
  Transmission Date: 20110831
  Serious: No
  Sender: FDA-Public Use
  Company Number: EC-PFIZER INC-2011004498

PATIENT
  Age: 33 Year
  Sex: Female

DRUGS (2)
  1. ZITHROMAX [Suspect]
     Indication: INFLUENZA
     Dosage: 500 MG, 1X/DAY
     Route: 048
     Dates: start: 20110104, end: 20110106
  2. MOTRIN [Concomitant]
     Dosage: 600 MG, 3X/DAY
     Route: 048
     Dates: start: 20110104, end: 20110106

REACTIONS (3)
  - NERVOUSNESS [None]
  - INSOMNIA [None]
  - TACHYCARDIA [None]
